FAERS Safety Report 14853281 (Version 1)
Quarter: 2018Q2

REPORT INFORMATION
  Report Type: Spontaneous
  Country: US (occurrence: US)
  Receive Date: 20180507
  Receipt Date: 20180507
  Transmission Date: 20180711
  Serious: No
  Sender: FDA-Public Use
  Company Number: US-BAYER-2018-086287

PATIENT
  Age: 17 Year
  Sex: Female

DRUGS (1)
  1. OCELLA [Suspect]
     Active Substance: DROSPIRENONE\ETHINYL ESTRADIOL
     Indication: ACNE
     Dosage: 3 MG, QD
     Route: 048
     Dates: start: 201803, end: 20180423

REACTIONS (7)
  - Headache [Unknown]
  - Nausea [Unknown]
  - Migraine [Unknown]
  - Disturbance in attention [Unknown]
  - Vision blurred [Unknown]
  - Vomiting [Unknown]
  - Dizziness [Unknown]

NARRATIVE: CASE EVENT DATE: 201803
